FAERS Safety Report 17262167 (Version 1)
Quarter: 2020Q1

REPORT INFORMATION
  Report Type: Spontaneous
  Country: US (occurrence: US)
  Receive Date: 20200110
  Receipt Date: 20200110
  Transmission Date: 20200409
  Serious: Yes (Hospitalization)
  Sender: FDA-Public Use
  Company Number: None

PATIENT
  Age: 63 Year
  Sex: Male

DRUGS (9)
  1. LAMVUDINE [Concomitant]
  2. AMOXICILLIN. [Concomitant]
     Active Substance: AMOXICILLIN
  3. GENGRAF [Suspect]
     Active Substance: CYCLOSPORINE
     Indication: LIVER TRANSPLANT
     Route: 048
     Dates: start: 20180920
  4. MYCOPHENOLATE [Suspect]
     Active Substance: MYCOPHENOLIC ACID
     Indication: LIVER TRANSPLANT
     Route: 048
     Dates: start: 20180131
  5. OXYMORPHONE [Concomitant]
     Active Substance: OXYMORPHONE
  6. LISINOPRIL. [Concomitant]
     Active Substance: LISINOPRIL
  7. DICLOFENAC GEL [Concomitant]
     Active Substance: DICLOFENAC
  8. ONDANSETRON [Concomitant]
     Active Substance: ONDANSETRON
  9. LACTULOSE. [Concomitant]
     Active Substance: LACTULOSE

REACTIONS (2)
  - Therapy cessation [None]
  - Abdominal discomfort [None]
